FAERS Safety Report 12201605 (Version 1)
Quarter: 2016Q1

REPORT INFORMATION
  Report Type: Spontaneous
  Country: US (occurrence: US)
  Receive Date: 20160322
  Receipt Date: 20160322
  Transmission Date: 20160526
  Serious: No
  Sender: FDA-Public Use
  Company Number: US-SA-2015SA121088

PATIENT

DRUGS (2)
  1. NASACORT ALLERGY 24HR [Suspect]
     Active Substance: TRIAMCINOLONE ACETONIDE
     Indication: MULTIPLE ALLERGIES
     Dosage: DOSE: 1 SPRAY 1 TIME A DAY IF I AM USING IT OR I MAY START WITH 2 SPRAYS ONCE A DAY FOR 1-3 DAYS.
     Route: 065
  2. NASACORT ALLERGY 24HR [Suspect]
     Active Substance: TRIAMCINOLONE ACETONIDE
     Indication: MULTIPLE ALLERGIES
     Route: 065

REACTIONS (4)
  - Oropharyngeal pain [Unknown]
  - Infection [Unknown]
  - Sputum discoloured [Unknown]
  - Extra dose administered [Unknown]
